FAERS Safety Report 18043570 (Version 1)
Quarter: 2020Q3

REPORT INFORMATION
  Report Type: Spontaneous
  Country: US (occurrence: US)
  Receive Date: 20200717
  Receipt Date: 20200717
  Transmission Date: 20201103
  Serious: No
  Sender: FDA-Public Use
  Company Number: None

PATIENT
  Age: 73 Year
  Sex: Male

DRUGS (1)
  1. PROGRAF [Suspect]
     Active Substance: TACROLIMUS
     Route: 048
     Dates: start: 20200717

REACTIONS (3)
  - End stage renal disease [None]
  - Coronary arterial stent insertion [None]
  - Dialysis [None]

NARRATIVE: CASE EVENT DATE: 20200717
